FAERS Safety Report 21173757 (Version 1)
Quarter: 2022Q3

REPORT INFORMATION
  Report Type: Spontaneous
  Country: US (occurrence: US)
  Receive Date: 20220804
  Receipt Date: 20220804
  Transmission Date: 20221026
  Serious: No
  Sender: FDA-Public Use
  Company Number: US-PERRIGO-22US002817

PATIENT
  Age: 79 Year
  Sex: Female
  Weight: 61.678 kg

DRUGS (1)
  1. LORATADINE [Suspect]
     Active Substance: LORATADINE
     Indication: Pruritus
     Dosage: 10 MG, SINGLE
     Route: 048
     Dates: start: 20220216, end: 20220216

REACTIONS (1)
  - Off label use [Recovered/Resolved]

NARRATIVE: CASE EVENT DATE: 20220216
